FAERS Safety Report 23897195 (Version 1)
Quarter: 2024Q2

REPORT INFORMATION
  Report Type: Spontaneous
  Country: US (occurrence: US)
  Receive Date: 20240524
  Receipt Date: 20240524
  Transmission Date: 20240715
  Serious: No
  Sender: FDA-Public Use
  Company Number: US-PFIZER INC-PV202400067796

PATIENT
  Age: 75 Year
  Sex: Male
  Weight: 85.1 kg

DRUGS (2)
  1. BRAFTOVI [Suspect]
     Active Substance: ENCORAFENIB
     Indication: Cholangiocarcinoma
     Dosage: 450 MG, 1X/DAY
     Route: 048
     Dates: start: 20240205
  2. MEKTOVI [Suspect]
     Active Substance: BINIMETINIB
     Indication: Cholangiocarcinoma
     Dosage: 45 MG, 2X/DAY
     Route: 048
     Dates: start: 20240205

REACTIONS (2)
  - Off label use [Unknown]
  - Myalgia [Unknown]
